FAERS Safety Report 18566063 (Version 1)
Quarter: 2020Q4

REPORT INFORMATION
  Report Type: Report from Study
  Country: ES (occurrence: ES)
  Receive Date: 20201201
  Receipt Date: 20201201
  Transmission Date: 20210114
  Serious: Yes (Other)
  Sender: FDA-Public Use
  Company Number: ES-PFIZER INC-2020467268

PATIENT
  Age: 43 Year
  Sex: Female

DRUGS (6)
  1. TRABECTEDIN [Suspect]
     Active Substance: TRABECTEDIN
     Indication: OVARIAN CANCER RECURRENT
     Dosage: 1.8 MG (CYCLE 2)
     Route: 042
     Dates: start: 20160908, end: 20160908
  2. TRABECTEDIN [Suspect]
     Active Substance: TRABECTEDIN
     Dosage: 1.4 MG (REDUCED CYCLE 5)
     Route: 042
     Dates: start: 20161116, end: 20161116
  3. DOXORUBICIN HCL [Suspect]
     Active Substance: DOXORUBICIN HYDROCHLORIDE
     Indication: OVARIAN CANCER RECURRENT
     Dosage: 50 UNK, CYCLE 2
     Route: 042
     Dates: start: 20160908, end: 20160908
  4. DOXORUBICIN HCL [Suspect]
     Active Substance: DOXORUBICIN HYDROCHLORIDE
     Dosage: 47.0 UNK, CYCLE 3
     Route: 042
     Dates: start: 20161006, end: 20161006
  5. DOXORUBICIN HCL [Suspect]
     Active Substance: DOXORUBICIN HYDROCHLORIDE
     Dosage: 40 UNK, CYCLE 5
     Route: 042
     Dates: start: 20161116, end: 20161116
  6. TRABECTEDIN [Suspect]
     Active Substance: TRABECTEDIN
     Dosage: 1.7 MG (DELAYED CYCLE 3)
     Route: 042
     Dates: start: 20161006, end: 20161006

REACTIONS (6)
  - Anaemia [Recovered/Resolved]
  - Anaemia [Recovered/Resolved]
  - Neutropenia [Recovered/Resolved]
  - Pyrexia [Recovered/Resolved]
  - Oropharyngeal discomfort [Recovered/Resolved]
  - Neutropenia [Recovered/Resolved]

NARRATIVE: CASE EVENT DATE: 20160908
